FAERS Safety Report 4845807-1 (Version None)
Quarter: 2005Q4

REPORT INFORMATION
  Report Type: 
  Country: None (occurrence: None)
  Receive Date: 20051201
  Receipt Date: 20051122
  Transmission Date: 20060501
  Serious: Yes (Death)
  Sender: FDA-Public Use
  Company Number: 05USA0232

PATIENT
  Age: 57 Year
  Sex: Female

DRUGS (8)
  1. AGGRASTAT [Suspect]
     Indication: CORONARY ARTERIAL STENT INSERTION
     Dosage: 8 ML QH
     Dates: start: 20051112
  2. PLAVIX [Suspect]
     Indication: DRUG USE FOR UNKNOWN INDICATION
     Dosage: 75 MG/DAILY
     Dates: start: 20051026, end: 20051112
  3. HEPARIN [Suspect]
     Indication: DRUG USE FOR UNKNOWN INDICATION
     Dosage: 1000 [UNIT]/QH
     Dates: start: 20051026, end: 20051112
  4. ASPIRIN [Suspect]
     Indication: DRUG USE FOR UNKNOWN INDICATION
     Dosage: 300 MG/DAILY
     Dates: start: 20051026, end: 20051112
  5. DOBUTAMINE (DOBUTAMINE) [Concomitant]
  6. INSULIN [Concomitant]
  7. NOREPINEPHRINE (NOREPINEPHRINE HYDROCHLORIDE) [Concomitant]
  8. STATIN [Concomitant]

REACTIONS (5)
  - CORONARY ARTERY STENOSIS [None]
  - EJECTION FRACTION DECREASED [None]
  - INTERNATIONAL NORMALISED RATIO INCREASED [None]
  - PULMONARY HAEMORRHAGE [None]
  - VENTRICULAR FIBRILLATION [None]
